FAERS Safety Report 4687739-8 (Version None)
Quarter: 2005Q2

REPORT INFORMATION
  Report Type: 
  Country: None (occurrence: None)
  Receive Date: 20050610
  Receipt Date: 20050607
  Transmission Date: 20051028
  Serious: Yes (Life-Threatening)
  Sender: FDA-Public Use
  Company Number: CH-SANOFI-SYNTHELABO-F01200500979

PATIENT
  Sex: Male

DRUGS (10)
  1. OXALIPLATIN [Suspect]
     Indication: COLORECTAL CANCER METASTATIC
     Route: 042
     Dates: start: 20050502, end: 20050502
  2. CAPECITABINE [Suspect]
     Dosage: 3600 MG (2 X 1000 MG/M2 PER DAY OF DAYS 1-15, Q3W)
     Route: 048
     Dates: start: 20050502, end: 20050518
  3. CETUXIMAB [Suspect]
     Route: 042
     Dates: start: 20050502, end: 20050502
  4. CETUXIMAB [Suspect]
     Route: 042
     Dates: start: 20050509, end: 20050509
  5. CETUXIMAB [Suspect]
     Route: 042
     Dates: start: 20050518, end: 20050518
  6. CREON [Concomitant]
     Dosage: 10000 UNIT
     Route: 048
     Dates: start: 20030307
  7. PHENPROCOUMON [Concomitant]
     Dosage: UNK
     Route: 048
     Dates: start: 20050301
  8. BELOC ZOK [Concomitant]
     Dosage: 25 MG
     Route: 048
     Dates: start: 20050301, end: 20050518
  9. ZURCAL [Concomitant]
     Dosage: 40 MG
     Route: 048
     Dates: start: 20050307
  10. IMODIUM [Concomitant]
     Dosage: UNK
     Route: 048
     Dates: start: 20050503

REACTIONS (1)
  - HYPERURICAEMIA [None]
